FAERS Safety Report 6762824-5 (Version None)
Quarter: 2010Q2

REPORT INFORMATION
  Report Type: 
  Country: None (occurrence: None)
  Receive Date: 20100609
  Receipt Date: 20100521
  Transmission Date: 20101027
  Serious: Yes (Hospitalization)
  Sender: FDA-Public Use
  Company Number: JP-TEVA-236088ISR

PATIENT
  Sex: Male

DRUGS (3)
  1. CISPLATIN [Suspect]
     Indication: GASTRIC CANCER
     Route: 042
     Dates: start: 20100413
  2. CAPECITABINE [Suspect]
     Indication: GASTRIC CANCER
     Route: 048
     Dates: start: 20100413
  3. ANTIXIB [Suspect]
     Indication: GASTRIC CANCER
     Route: 043
     Dates: start: 20100410

REACTIONS (3)
  - GASTROINTESTINAL PERFORATION [None]
  - MALAISE [None]
  - PERITONITIS [None]
